FAERS Safety Report 6706057-7 (Version None)
Quarter: 2010Q2

REPORT INFORMATION
  Report Type: 
  Country: None (occurrence: None)
  Receive Date: 20100503
  Receipt Date: 20100423
  Transmission Date: 20101027
  Serious: Yes (Hospitalization, Other)
  Sender: FDA-Public Use
  Company Number: US-SANOFI-AVENTIS-2010SA024264

PATIENT
  Age: 86 Year
  Sex: Female

DRUGS (1)
  1. PLAVIX [Suspect]
     Route: 048
     Dates: start: 20000101, end: 20100401

REACTIONS (7)
  - ABDOMINAL TENDERNESS [None]
  - DIARRHOEA [None]
  - FALL [None]
  - HAEMATURIA [None]
  - LOWER GASTROINTESTINAL HAEMORRHAGE [None]
  - PAIN [None]
  - RENAL INJURY [None]
